FAERS Safety Report 9062141 (Version 2)
Quarter: 2013Q1

REPORT INFORMATION
  Report Type: Spontaneous
  Country: US (occurrence: US)
  Receive Date: 20130206
  Receipt Date: 20130212
  Transmission Date: 20140127
  Serious: No
  Sender: FDA-Public Use
  Company Number: US-B.I. PHARMACEUTICALS,INC./RIDGEFIELD-2013-BI-03293BP

PATIENT
  Age: 67 None
  Sex: Female

DRUGS (15)
  1. SPIRIVA [Suspect]
     Indication: CHRONIC OBSTRUCTIVE PULMONARY DISEASE
     Dosage: 18 MCG
     Route: 055
     Dates: start: 2006
  2. ALPRAZOLAM [Concomitant]
     Route: 048
  3. AZITHROMYCIN [Concomitant]
     Route: 048
  4. PAMELOR [Concomitant]
     Indication: MIGRAINE
     Dosage: 50 MG
     Route: 048
  5. FANOTIDINE [Concomitant]
     Route: 048
  6. CYMBALTA [Concomitant]
     Dosage: 90 MG
     Route: 048
  7. AMBIEN [Concomitant]
     Dosage: 12.5 MG
     Route: 048
  8. ATIVAN [Concomitant]
     Route: 048
  9. ACTONEL [Concomitant]
     Route: 048
  10. PULMOZYNE [Concomitant]
     Route: 055
  11. NASONEX [Concomitant]
     Route: 045
  12. METHOCARBAMOL [Concomitant]
     Route: 048
  13. NYSTATIN [Concomitant]
     Route: 048
  14. HYDROMET [Concomitant]
     Route: 048
  15. MAXALT [Concomitant]
     Indication: MIGRAINE
     Route: 048

REACTIONS (5)
  - Dyspnoea [Not Recovered/Not Resolved]
  - Dysphonia [Not Recovered/Not Resolved]
  - Product quality issue [Recovered/Resolved]
  - Product quality issue [Recovered/Resolved]
  - Product quality issue [Recovered/Resolved]
